FAERS Safety Report 8477255-X (Version None)
Quarter: 2012Q2

REPORT INFORMATION
  Report Type: 
  Country: None (occurrence: None)
  Receive Date: 20120629
  Receipt Date: 20120620
  Transmission Date: 20120825
  Serious: Yes (Hospitalization)
  Sender: FDA-Public Use
  Company Number: US-JNJFOC-20120610554

PATIENT
  Sex: Female
  Weight: 97.52 kg

DRUGS (9)
  1. DURAGESIC-100 [Suspect]
     Route: 062
     Dates: start: 20090101, end: 20100101
  2. MARCEN [Concomitant]
     Indication: PAIN MANAGEMENT
     Route: 065
  3. DURAGESIC-100 [Suspect]
     Indication: PAIN
     Route: 062
     Dates: start: 20040101, end: 20080101
  4. DURAGESIC-100 [Suspect]
     Route: 062
     Dates: start: 20080101, end: 20090101
  5. IMMUNE GLOBULIN NOS [Suspect]
     Indication: NERVOUS SYSTEM DISORDER
     Route: 042
     Dates: start: 20010101
  6. TORADOL [Concomitant]
     Indication: PAIN MANAGEMENT
     Route: 065
  7. DURAGESIC-100 [Suspect]
     Indication: PAIN
     Route: 062
     Dates: start: 20100101
  8. BACLOFEN [Concomitant]
     Indication: MUSCLE SPASMS
     Route: 065
  9. TORADOL [Concomitant]
     Route: 065
     Dates: end: 20110101

REACTIONS (7)
  - CARDIAC DISORDER [None]
  - NERVOUS SYSTEM DISORDER [None]
  - RENAL DISORDER [None]
  - ABNORMAL LOSS OF WEIGHT [None]
  - BLOOD PRESSURE ABNORMAL [None]
  - JOINT SWELLING [None]
  - PAIN [None]
